FAERS Safety Report 9717739 (Version 3)
Quarter: 2013Q4

REPORT INFORMATION
  Report Type: Report from Study
  Country: AT (occurrence: AT)
  Receive Date: 20131127
  Receipt Date: 20131210
  Transmission Date: 20140711
  Serious: Yes (Hospitalization)
  Sender: FDA-Public Use
  Company Number: AT-JNJFOC-20130712534

PATIENT
  Age: 32 Year
  Sex: Male
  Weight: 61 kg

DRUGS (11)
  1. TMC207 [Suspect]
     Route: 048
  2. TMC207 [Suspect]
     Indication: TUBERCULOSIS
     Route: 048
     Dates: start: 20130708
  3. PYRAZINAMIDE [Concomitant]
     Indication: TUBERCULOSIS
     Dosage: DOSE REPORTED AS 1500, FREQUENCY 2
     Route: 048
     Dates: start: 20130420
  4. ETHAMBUTOL [Concomitant]
     Indication: TUBERCULOSIS
     Dosage: DOSE REPORTED AS 1500, FREQUENCY 2
     Route: 048
  5. TERIZIDONE [Concomitant]
     Indication: TUBERCULOSIS
     Dosage: DOSE REPORTED AS 750, FREQUENCY 2
     Route: 048
     Dates: start: 20130423
  6. ZYVOXID [Concomitant]
     Indication: TUBERCULOSIS
     Dosage: DOSE REPORTED AS 600, FREQUENCY 2
     Route: 048
     Dates: start: 20130613
  7. AMIKACIN [Concomitant]
     Indication: TUBERCULOSIS
     Dosage: DOSE REPORTED AS 1000, FREQUENCY 2
     Route: 042
  8. PAS [Concomitant]
     Indication: TUBERCULOSIS
     Dosage: DOSE REPORTED AS 1300, FREQUENCY 2
     Route: 042
     Dates: start: 20130613
  9. PANTOLOC [Concomitant]
     Indication: GASTRIC DISORDER
     Dosage: FREQUENCY REPORTED AS 2
     Route: 048
     Dates: start: 20130426, end: 20131120
  10. DEXIBUPROFEN [Concomitant]
     Indication: ARTHRALGIA
     Dosage: FREQUENCY REPORTED AS 2
     Route: 048
     Dates: end: 20130717
  11. PANTOLOC [Concomitant]
     Indication: GASTRIC DISORDER
     Route: 042
     Dates: start: 20131121

REACTIONS (4)
  - White blood cell count decreased [Recovered/Resolved]
  - Red blood cell count decreased [Recovered/Resolved]
  - Amylase increased [Recovered/Resolved]
  - Lipase increased [Recovered/Resolved]
